FAERS Safety Report 9821092 (Version 2)
Quarter: 2014Q4

REPORT INFORMATION
  Report Type: Spontaneous
  Country: US (occurrence: None)
  Receive Date: 20131028
  Receipt Date: 20141015
  Transmission Date: 20150529
  Serious: No
  Sender: FDA-Public Use
  Company Number: 2013US001798

PATIENT
  Age: 75 Year
  Sex: Male
  Weight: 102 kg

DRUGS (12)
  1. ICLUSIG [Suspect]
     Active Substance: PONATINIB
     Indication: CHRONIC MYELOID LEUKAEMIA
     Route: 048
     Dates: start: 20130522
  2. AMLODIPINE [Concomitant]
     Active Substance: AMLODIPINE BESYLATE
  3. INSULIN (INSULIN) [Concomitant]
     Active Substance: INSULIN NOS
  4. FINASTERIDE (FINASTERIDE) [Concomitant]
     Active Substance: FINASTERIDE
  5. ASA (ASA) [Concomitant]
  6. QUINIDINE (QUINIDINE) [Concomitant]
  7. ZEMPLAR [Concomitant]
     Active Substance: PARICALCITOL
  8. PRAVASTATIN [Concomitant]
     Active Substance: PRAVASTATIN\PRAVASTATIN SODIUM
  9. LEXAPRO [Concomitant]
     Active Substance: ESCITALOPRAM OXALATE
  10. NITRO (GLYCERYL TRINITRATE) [Concomitant]
  11. GLIMEPIRIDE (GLIMEPIRIDE) [Concomitant]
     Active Substance: GLIMEPIRIDE
  12. LEVEMIR [Concomitant]
     Active Substance: INSULIN DETEMIR

REACTIONS (3)
  - Vitamin D decreased [None]
  - Dry skin [None]
  - Rash [None]

NARRATIVE: CASE EVENT DATE: 20130611
